FAERS Safety Report 14904906 (Version 1)
Quarter: 2018Q2

REPORT INFORMATION
  Report Type: Spontaneous
  Country: US (occurrence: US)
  Receive Date: 20180517
  Receipt Date: 20180517
  Transmission Date: 20180711
  Serious: No
  Sender: FDA-Public Use
  Company Number: US-SA-2017SA197960

PATIENT
  Age: 71 Year
  Sex: Female

DRUGS (5)
  1. TOUJEO [Concomitant]
     Active Substance: INSULIN GLARGINE
     Dates: start: 2017
  2. HUMALOG [Concomitant]
     Active Substance: INSULIN LISPRO
  3. SOLOSTAR [Concomitant]
     Active Substance: DEVICE
     Dates: start: 2017
  4. LANTUS [Suspect]
     Active Substance: INSULIN GLARGINE
     Route: 051
  5. LANTUS [Suspect]
     Active Substance: INSULIN GLARGINE
     Dosage: 31 UNITS IN THE MORNING. 7 UNITS IN THE EVENING
     Route: 051

REACTIONS (4)
  - Memory impairment [Unknown]
  - Blood glucose increased [Unknown]
  - Blood glucose decreased [Unknown]
  - Product use issue [Unknown]

NARRATIVE: CASE EVENT DATE: 2017
